FAERS Safety Report 12505071 (Version 2)
Quarter: 2016Q4

REPORT INFORMATION
  Report Type: Spontaneous
  Country: US (occurrence: US)
  Receive Date: 20160628
  Receipt Date: 20161109
  Transmission Date: 20170207
  Serious: No
  Sender: FDA-Public Use
  Company Number: US-GLAXOSMITHKLINE-US2016085935

PATIENT
  Sex: Male

DRUGS (13)
  1. GABAPENTIN. [Concomitant]
     Active Substance: GABAPENTIN
  2. OMEPRAZOLE. [Concomitant]
     Active Substance: OMEPRAZOLE
  3. ACTONEL [Concomitant]
     Active Substance: RISEDRONATE SODIUM
  4. ASPIRIN (BABY) [Concomitant]
     Active Substance: ASPIRIN
  5. INCRUSE ELLIPTA [Suspect]
     Active Substance: UMECLIDINIUM BROMIDE
     Indication: ASTHMA
     Dosage: 1 PUFF(S), 1D
     Route: 055
     Dates: start: 20160604, end: 20160613
  6. LISINOPRIL. [Concomitant]
     Active Substance: LISINOPRIL
  7. SIMVASTATIN. [Concomitant]
     Active Substance: SIMVASTATIN
  8. BREO ELLIPTA [Concomitant]
     Active Substance: FLUTICASONE FUROATE\VILANTEROL TRIFENATATE
  9. ESCITALOPRAM [Concomitant]
     Active Substance: ESCITALOPRAM OXALATE
  10. FENOFIBRATE. [Concomitant]
     Active Substance: FENOFIBRATE
  11. LEVOTHYROXIN [Concomitant]
     Active Substance: LEVOTHYROXINE
  12. PSEUDOEPHEDRINE [Concomitant]
     Active Substance: PSEUDOEPHEDRINE
  13. MELOXICAM. [Concomitant]
     Active Substance: MELOXICAM

REACTIONS (10)
  - Headache [Recovering/Resolving]
  - Throat irritation [Recovering/Resolving]
  - Diarrhoea [Recovering/Resolving]
  - Eye pain [Recovering/Resolving]
  - Lactose intolerance [Unknown]
  - Dyspepsia [Recovering/Resolving]
  - Decreased appetite [Recovering/Resolving]
  - Abdominal pain [Recovering/Resolving]
  - Tongue discomfort [Recovering/Resolving]
  - Pyrexia [Recovering/Resolving]
